FAERS Safety Report 7351945-4 (Version None)
Quarter: 2011Q1

REPORT INFORMATION
  Report Type: 
  Country: None (occurrence: None)
  Receive Date: 20110310
  Receipt Date: 20110310
  Transmission Date: 20110831
  Serious: Yes (Other)
  Sender: FDA-Public Use
  Company Number: None

PATIENT
  Sex: Female
  Weight: 178 kg

DRUGS (1)
  1. CIPRO [Suspect]

REACTIONS (15)
  - ABDOMINAL PAIN [None]
  - TREMOR [None]
  - LETHARGY [None]
  - ASTHENIA [None]
  - INFLAMMATION [None]
  - RECTAL HAEMORRHAGE [None]
  - JOINT SWELLING [None]
  - RASH [None]
  - DYSPEPSIA [None]
  - DIARRHOEA [None]
  - ARTHRALGIA [None]
  - GAIT DISTURBANCE [None]
  - PAIN [None]
  - PAIN IN JAW [None]
  - FLATULENCE [None]
